FAERS Safety Report 17421421 (Version 1)
Quarter: 2020Q1

REPORT INFORMATION
  Report Type: Spontaneous
  Country: US (occurrence: US)
  Receive Date: 20200214
  Receipt Date: 20200214
  Transmission Date: 20200409
  Serious: No
  Sender: FDA-Public Use
  Company Number: US-BAYER-2020-023744

PATIENT
  Sex: Male

DRUGS (3)
  1. NEULASTA [Concomitant]
     Active Substance: PEGFILGRASTIM
  2. CLARITIN-D 24 HOUR [Suspect]
     Active Substance: LORATADINE\PSEUDOEPHEDRINE SULFATE
     Indication: BONE PAIN
  3. CLARITIN-D 24 HOUR [Suspect]
     Active Substance: LORATADINE\PSEUDOEPHEDRINE SULFATE
     Indication: UPPER RESPIRATORY TRACT INFECTION
     Dosage: UNK

REACTIONS (1)
  - Drug effective for unapproved indication [Unknown]
